FAERS Safety Report 24460067 (Version 1)
Quarter: 2024Q4

REPORT INFORMATION
  Report Type: Report from Study
  Country: US (occurrence: US)
  Receive Date: 20241018
  Receipt Date: 20241018
  Transmission Date: 20250115
  Serious: No
  Sender: ROCHE
  Company Number: US-ROCHE-3558218

PATIENT
  Age: 73 Year
  Sex: Male

DRUGS (24)
  1. RITUXAN [Suspect]
     Active Substance: RITUXIMAB
     Indication: Granulomatosis with polyangiitis
     Route: 041
     Dates: start: 20210115, end: 20220115
  2. RITUXAN [Suspect]
     Active Substance: RITUXIMAB
     Indication: Chronic left ventricular failure
     Route: 041
     Dates: start: 20231124
  3. RITUXAN [Suspect]
     Active Substance: RITUXIMAB
     Indication: Ventricular tachycardia
  4. RITUXAN [Suspect]
     Active Substance: RITUXIMAB
     Indication: Atrial flutter
  5. ACETAMINOPHEN [Concomitant]
     Active Substance: ACETAMINOPHEN
  6. LIPITOR [Concomitant]
     Active Substance: ATORVASTATIN CALCIUM
  7. VITAMIN D3 [Concomitant]
     Active Substance: CHOLECALCIFEROL
  8. VITAMIN B12 [Concomitant]
     Active Substance: CYANOCOBALAMIN
  9. CYMBALTA [Concomitant]
     Active Substance: DULOXETINE HYDROCHLORIDE
  10. FLONASE [Concomitant]
     Active Substance: FLUTICASONE PROPIONATE
  11. FOLIC ACID [Concomitant]
     Active Substance: FOLIC ACID
  12. LASIX [Concomitant]
     Active Substance: FUROSEMIDE
  13. LANCET [Concomitant]
  14. CLARITIN [Concomitant]
     Active Substance: LORATADINE
  15. GLUCOPHAGE XR [Concomitant]
     Active Substance: METFORMIN HYDROCHLORIDE
  16. TOPROL XL [Concomitant]
     Active Substance: METOPROLOL SUCCINATE
  17. NITROSTAT [Concomitant]
     Active Substance: NITROGLYCERIN
  18. PRILOSEC [Concomitant]
     Active Substance: OMEPRAZOLE MAGNESIUM
  19. OZEMPIC [Concomitant]
     Active Substance: SEMAGLUTIDE
  20. BACTRIM [Concomitant]
     Active Substance: SULFAMETHOXAZOLE\TRIMETHOPRIM
  21. MORNIFLUMATE [Concomitant]
     Active Substance: MORNIFLUMATE
  22. ULTRAM [Concomitant]
     Active Substance: TRAMADOL HYDROCHLORIDE
  23. DESYREL [Concomitant]
     Active Substance: TRAZODONE HYDROCHLORIDE
  24. COUMADIN [Concomitant]
     Active Substance: WARFARIN SODIUM

REACTIONS (2)
  - Off label use [Unknown]
  - No adverse event [Unknown]
